FAERS Safety Report 11198050 (Version 3)
Quarter: 2015Q3

REPORT INFORMATION
  Report Type: Spontaneous
  Country: US (occurrence: US)
  Receive Date: 20150617
  Receipt Date: 20150811
  Transmission Date: 20151125
  Serious: Yes (Hospitalization, Congenital Anomaly, Other)
  Sender: FDA-Public Use
  Company Number: US-APOTEX-2015AP008764

PATIENT
  Sex: Male

DRUGS (1)
  1. PAXIL [Suspect]
     Active Substance: PAROXETINE HYDROCHLORIDE
     Indication: PRODUCT USED FOR UNKNOWN INDICATION
     Dosage: 30 MG, UNK
     Route: 064

REACTIONS (14)
  - Quadriplegia [Unknown]
  - Scoliosis [Unknown]
  - Cerebral palsy [Unknown]
  - Vomiting [Unknown]
  - Microcephaly [Unknown]
  - Aortic valve incompetence [Unknown]
  - Gastroenteritis [Unknown]
  - Hydrocephalus [Unknown]
  - Dehydration [Unknown]
  - Cyanosis [Unknown]
  - Foetal exposure during pregnancy [Unknown]
  - Congenital optic nerve anomaly [Unknown]
  - Autism [Unknown]
  - Gastrooesophageal reflux disease [Unknown]
